FAERS Safety Report 8476859 (Version 2)
Quarter: 2015Q1

REPORT INFORMATION
  Report Type: Spontaneous
  Country: US (occurrence: US)
  Receive Date: 20120326
  Receipt Date: 20150216
  Transmission Date: 20150721
  Serious: Yes (Congenital Anomaly)
  Sender: FDA-Public Use
  Company Number: US-ELI_LILLY_AND_COMPANY-US201203004355

PATIENT

DRUGS (2)
  1. PROZAC [Suspect]
     Active Substance: FLUOXETINE HYDROCHLORIDE
     Indication: DEPRESSION
     Dosage: 20 MG, QD
     Route: 064
  2. PROZAC [Suspect]
     Active Substance: FLUOXETINE HYDROCHLORIDE
     Indication: DEPRESSION
     Dosage: 20 MG, QD
     Route: 064

REACTIONS (2)
  - Foetal exposure during pregnancy [Recovered/Resolved with Sequelae]
  - Craniosynostosis [Unknown]
